FAERS Safety Report 5943102-0 (Version None)
Quarter: 2008Q4

REPORT INFORMATION
  Report Type: 
  Country: None (occurrence: None)
  Receive Date: 20081106
  Receipt Date: 20081030
  Transmission Date: 20090506
  Serious: Yes (Hospitalization)
  Sender: FDA-Public Use
  Company Number: US-AMGEN-QUU316503

PATIENT
  Sex: Female

DRUGS (2)
  1. ENBREL [Suspect]
     Indication: RHEUMATOID ARTHRITIS
     Route: 058
     Dates: start: 20040621
  2. PLAQUENIL [Concomitant]

REACTIONS (9)
  - BLOOD ELECTROLYTES ABNORMAL [None]
  - EAR PAIN [None]
  - INTERVERTEBRAL DISC DEGENERATION [None]
  - LIPOMA [None]
  - NASOPHARYNGITIS [None]
  - OROPHARYNGEAL PAIN [None]
  - PNEUMONIA [None]
  - RHEUMATOID ARTHRITIS [None]
  - THROMBOSIS [None]
